FAERS Safety Report 9736955 (Version 1)
Quarter: 2013Q4

REPORT INFORMATION
  Report Type: Report from Study
  Country: AR (occurrence: AR)
  Receive Date: 20131206
  Receipt Date: 20131206
  Transmission Date: 20140711
  Serious: Yes (Other)
  Sender: FDA-Public Use
  Company Number: PHHY2013AR142683

PATIENT
  Sex: Female

DRUGS (1)
  1. EXFORGE [Suspect]
     Indication: HYPERTENSION
     Dosage: 80/5 MG, UNK
     Route: 048
     Dates: start: 201307

REACTIONS (4)
  - Diabetes mellitus [Unknown]
  - Osteoarthritis [Unknown]
  - Local swelling [Not Recovered/Not Resolved]
  - Asthenia [Unknown]
